FAERS Safety Report 18400466 (Version 1)
Quarter: 2020Q4

REPORT INFORMATION
  Report Type: Spontaneous
  Country: US (occurrence: US)
  Receive Date: 20201019
  Receipt Date: 20201019
  Transmission Date: 20210114
  Serious: Yes (Other)
  Sender: FDA-Public Use
  Company Number: US-PFIZER INC-2020400025

PATIENT
  Age: 74 Year
  Sex: Female
  Weight: 79.38 kg

DRUGS (1)
  1. IBRANCE [Suspect]
     Active Substance: PALBOCICLIB
     Dosage: UNK
     Dates: start: 2016

REACTIONS (3)
  - Impaired healing [Unknown]
  - Trismus [Unknown]
  - Swelling face [Unknown]
